FAERS Safety Report 10223717 (Version 1)
Quarter: 2014Q2

REPORT INFORMATION
  Report Type: Spontaneous
  Country: CN (occurrence: CN)
  Receive Date: 20140609
  Receipt Date: 20140609
  Transmission Date: 20141212
  Serious: Yes (Other)
  Sender: FDA-Public Use
  Company Number: CN-ROCHE-1414738

PATIENT
  Age: 24 Year
  Sex: Female
  Weight: 50 kg

DRUGS (5)
  1. ROCEPHIN [Suspect]
     Indication: GASTROENTERITIS
     Route: 041
     Dates: start: 20131021, end: 20131102
  2. LEVOFLOXACIN [Suspect]
     Indication: BRONCHOPNEUMONIA
     Route: 041
     Dates: start: 20131022, end: 20131030
  3. SODIUM CHLORIDE [Suspect]
     Indication: BRONCHOPNEUMONIA
     Route: 041
     Dates: start: 20131022, end: 20131030
  4. FLAVOXATE HYDROCHLORIDE [Concomitant]
     Indication: ACUTE TONSILLITIS
     Route: 048
     Dates: start: 20131021, end: 20131102
  5. SODIUM BICARBONATE [Concomitant]
     Indication: BRONCHIOLITIS
     Route: 048
     Dates: start: 20131021, end: 20131102

REACTIONS (1)
  - Hepatic function abnormal [Recovered/Resolved]
